FAERS Safety Report 7890329-7 (Version None)
Quarter: 2011Q4

REPORT INFORMATION
  Report Type: 
  Country: None (occurrence: None)
  Receive Date: 20111103
  Receipt Date: 20110805
  Transmission Date: 20120403
  Serious: Yes (Hospitalization, Other)
  Sender: FDA-Public Use
  Company Number: US-AMGEN-USASP2011040065

PATIENT
  Age: 37 Year
  Sex: Female

DRUGS (1)
  1. ENBREL [Suspect]
     Indication: RHEUMATOID ARTHRITIS
     Dosage: 50 MG, QWK
     Dates: start: 20100607

REACTIONS (7)
  - ARTHRALGIA [None]
  - JOINT SWELLING [None]
  - PAIN IN EXTREMITY [None]
  - OEDEMA PERIPHERAL [None]
  - HEPATITIS C [None]
  - MUSCULOSKELETAL PAIN [None]
  - WHITE BLOOD CELL COUNT DECREASED [None]
